FAERS Safety Report 16108242 (Version 1)
Quarter: 2019Q1

REPORT INFORMATION
  Report Type: Report from Study
  Country: US (occurrence: US)
  Receive Date: 20190322
  Receipt Date: 20190322
  Transmission Date: 20190418
  Serious: Yes (Hospitalization, Other)
  Sender: FDA-Public Use
  Company Number: US-MYLANLABS-2019M1026148

PATIENT
  Age: 59 Year
  Sex: Male
  Weight: 63 kg

DRUGS (17)
  1. ZESTRIL [Concomitant]
     Active Substance: LISINOPRIL
     Dosage: UNK
     Dates: start: 20181224
  2. VITAMIN D2 [Concomitant]
     Active Substance: ERGOCALCIFEROL
     Dosage: UNK
  3. PRINIVIL [Concomitant]
     Active Substance: LISINOPRIL
     Dosage: UNK
     Dates: start: 20181224
  4. NOXAFIL [Concomitant]
     Active Substance: POSACONAZOLE
     Dosage: UNK
     Dates: start: 20181224
  5. PROCARDIA [Concomitant]
     Active Substance: NIFEDIPINE
     Dosage: UNK
     Dates: start: 20180328
  6. DILAUDID [Concomitant]
     Active Substance: HYDROMORPHONE HYDROCHLORIDE
     Dosage: UNK
  7. COMBIGAN [Concomitant]
     Active Substance: BRIMONIDINE TARTRATE\TIMOLOL MALEATE
     Dosage: UNK
     Dates: start: 20180917
  8. MAGNESIUM OXIDE. [Concomitant]
     Active Substance: MAGNESIUM OXIDE
     Dosage: UNK
     Dates: start: 20180806
  9. BACTRIM [Concomitant]
     Active Substance: SULFAMETHOXAZOLE\TRIMETHOPRIM
     Dosage: UNK
     Dates: start: 20180807
  10. PROGRAF [Concomitant]
     Active Substance: TACROLIMUS\TACROLIMUS ANHYDROUS
     Dosage: UNK
     Dates: start: 20180806, end: 20181121
  11. CYTARABINE. [Suspect]
     Active Substance: CYTARABINE
     Indication: ACUTE MYELOID LEUKAEMIA
     Dosage: 100 MILLIGRAM/SQ. METER, QD
     Route: 042
     Dates: start: 20161220, end: 20161226
  12. IDARUBICIN [Suspect]
     Active Substance: IDARUBICIN
     Indication: ACUTE MYELOID LEUKAEMIA
     Dosage: 1 MILLIGRAM PER MILLILITRE, QD
     Route: 042
     Dates: start: 20161220, end: 20181223
  13. TOPROL XL [Concomitant]
     Active Substance: METOPROLOL SUCCINATE
     Dosage: UNK
     Dates: start: 20180328
  14. PROTONIX [Concomitant]
     Active Substance: PANTOPRAZOLE SODIUM
     Dosage: UNK
     Dates: start: 20181126
  15. ZANAFLEX [Concomitant]
     Active Substance: TIZANIDINE HYDROCHLORIDE
     Dosage: UNK
     Dates: start: 20180807
  16. DELTASONE                          /00016001/ [Concomitant]
     Active Substance: DEXAMETHASONE
     Dosage: UNK
     Dates: start: 20181015
  17. VALTREX [Concomitant]
     Active Substance: VALACYCLOVIR HYDROCHLORIDE
     Dosage: UNK

REACTIONS (4)
  - Cough [Recovered/Resolved]
  - Parainfluenzae virus infection [Recovered/Resolved]
  - Dyspnoea [Recovered/Resolved]
  - Respiratory tract infection fungal [Recovered/Resolved]

NARRATIVE: CASE EVENT DATE: 20181225
